FAERS Safety Report 12232430 (Version 3)
Quarter: 2016Q2

REPORT INFORMATION
  Report Type: Report from Study
  Country: CA (occurrence: CA)
  Receive Date: 20160401
  Receipt Date: 20160411
  Transmission Date: 20160815
  Serious: No
  Sender: FDA-Public Use
  Company Number: CA-ABBVIE-16K-028-1595149-00

PATIENT
  Sex: Male
  Weight: 20.6 kg

DRUGS (1)
  1. HUMIRA [Suspect]
     Active Substance: ADALIMUMAB
     Indication: UVEITIS
     Route: 058
     Dates: start: 20140417

REACTIONS (1)
  - Ear disorder [Not Recovered/Not Resolved]
